FAERS Safety Report 9215414 (Version 1)
Quarter: 2013Q2

REPORT INFORMATION
  Report Type: Report from Study
  Country: HU (occurrence: HU)
  Receive Date: 20130405
  Receipt Date: 20130405
  Transmission Date: 20140414
  Serious: Yes (Other)
  Sender: FDA-Public Use
  Company Number: HU-AMGEN-HUNCT2012055401

PATIENT
  Age: 77 Year
  Sex: Male

DRUGS (1)
  1. DENOSUMAB [Suspect]
     Indication: PROSTATE CANCER
     Dosage: 1 ML, Q4WK
     Route: 058
     Dates: start: 20070420

REACTIONS (1)
  - Osteonecrosis of jaw [Not Recovered/Not Resolved]
